FAERS Safety Report 5725823-8 (Version None)
Quarter: 2008Q2

REPORT INFORMATION
  Report Type: 
  Country: None (occurrence: None)
  Receive Date: 20080429
  Receipt Date: 20080416
  Transmission Date: 20081010
  Serious: Yes (Death, Hospitalization)
  Sender: FDA-Public Use
  Company Number: 2007US000783

PATIENT
  Age: 58 Year
  Sex: Female

DRUGS (3)
  1. PROGRAF [Suspect]
     Indication: KIDNEY TRANSPLANT REJECTION
     Dates: start: 20051026
  2. VORICONAZOLE (VORICONAZOLE) [Concomitant]
  3. CANCIDAS [Concomitant]

REACTIONS (5)
  - CLOSTRIDIUM DIFFICILE COLITIS [None]
  - HYPOKALAEMIA [None]
  - HYPOVOLAEMIA [None]
  - OLIGURIA [None]
  - SEPTIC SHOCK [None]
